FAERS Safety Report 20306054 (Version 2)
Quarter: 2022Q1

REPORT INFORMATION
  Report Type: Spontaneous
  Country: US (occurrence: US)
  Receive Date: 20220106
  Receipt Date: 20220127
  Transmission Date: 20220423
  Serious: Yes (Other)
  Sender: FDA-Public Use
  Company Number: US-ALLERGAN-2200975US

PATIENT
  Sex: Male

DRUGS (1)
  1. BOTOX [Suspect]
     Active Substance: ONABOTULINUMTOXINA
     Indication: Migraine
     Dosage: UNK, SINGLE

REACTIONS (12)
  - Cerebrovascular accident [Unknown]
  - Dementia [Unknown]
  - Bipolar disorder [Unknown]
  - Anxiety [Unknown]
  - Hypertension [Unknown]
  - Blood cholesterol increased [Unknown]
  - Cardiac failure congestive [Unknown]
  - Stent placement [Unknown]
  - Cardiac pacemaker insertion [Unknown]
  - Parkinson^s disease [Unknown]
  - Abdominal pain upper [Unknown]
  - Drug ineffective [Unknown]
